FAERS Safety Report 17982243 (Version 1)
Quarter: 2020Q3

REPORT INFORMATION
  Report Type: Spontaneous
  Country: PL (occurrence: PL)
  Receive Date: 20200706
  Receipt Date: 20200706
  Transmission Date: 20201103
  Serious: Yes (Other)
  Sender: FDA-Public Use
  Company Number: PL-SUN PHARMACEUTICAL INDUSTRIES LTD-2020RR-252356

PATIENT
  Age: 35 Year
  Sex: Male

DRUGS (3)
  1. MEROPENEM. [Suspect]
     Active Substance: MEROPENEM
     Indication: PNEUMONIA VIRAL
     Dosage: 1 GRAM, QD
     Route: 042
     Dates: start: 20200327, end: 20200407
  2. AZITHROMYCIN ANHYDROUS. [Suspect]
     Active Substance: AZITHROMYCIN ANHYDROUS
     Indication: PNEUMONIA VIRAL
     Dosage: 500 MILLIGRAM, QD
     Route: 065
     Dates: start: 20200405, end: 20200407
  3. HYDROXYCHLOROQUINE [Suspect]
     Active Substance: HYDROXYCHLOROQUINE
     Indication: PNEUMONIA VIRAL
     Dosage: 250 MILLIGRAM, BID
     Route: 065
     Dates: start: 20200326, end: 20200402

REACTIONS (1)
  - Off label use [Unknown]
